FAERS Safety Report 4783884-7 (Version None)
Quarter: 2005Q3

REPORT INFORMATION
  Report Type: 
  Country: None (occurrence: None)
  Receive Date: 20050929
  Receipt Date: 20050916
  Transmission Date: 20060218
  Serious: Yes (Hospitalization)
  Sender: FDA-Public Use
  Company Number: NL-MERCK-0509NLD00018

PATIENT
  Age: 77 Year
  Sex: Female

DRUGS (6)
  1. EZETIMIBE [Suspect]
     Indication: HYPERCHOLESTEROLAEMIA
     Route: 048
     Dates: start: 20040404, end: 20040914
  2. ATORVASTATIN CALCIUM [Suspect]
     Indication: HYPERCHOLESTEROLAEMIA
     Route: 048
     Dates: start: 19980101, end: 20040914
  3. GEMFIBROZIL [Suspect]
     Route: 048
     Dates: start: 20020101, end: 20040914
  4. AMLODIPINE BESYLATE [Concomitant]
     Route: 065
     Dates: start: 19980101
  5. ATENOLOL [Concomitant]
     Route: 065
     Dates: start: 19980101
  6. DICLOFENAC [Concomitant]
     Route: 065
     Dates: end: 20040914

REACTIONS (7)
  - BLOOD AMYLASE INCREASED [None]
  - BLOOD CREATINE PHOSPHOKINASE MB INCREASED [None]
  - DRUG INTERACTION [None]
  - HEPATIC FUNCTION ABNORMAL [None]
  - INFLUENZA LIKE ILLNESS [None]
  - RENAL FAILURE [None]
  - RHABDOMYOLYSIS [None]
